FAERS Safety Report 9412190 (Version 1)
Quarter: 2013Q3

REPORT INFORMATION
  Report Type: Spontaneous
  Country: US (occurrence: None)
  Receive Date: 20130719
  Receipt Date: 20130719
  Transmission Date: 20140515
  Serious: Yes (Other)
  Sender: FDA-Public Use
  Company Number: None

PATIENT
  Age: 86 Year
  Sex: Male
  Weight: 95 kg

DRUGS (1)
  1. DAPTOMYCIN (CUBICIN) [Suspect]
     Indication: WOUND INFECTION
     Dosage: Q48H
     Route: 042
     Dates: start: 20130617, end: 20130703

REACTIONS (1)
  - Eosinophilic pneumonia [None]
